FAERS Safety Report 8797215 (Version 2)
Quarter: 2012Q4

REPORT INFORMATION
  Report Type: 
  Country: DE (occurrence: DE)
  Receive Date: 20120919
  Receipt Date: 20121011
  Transmission Date: 20130627
  Serious: Yes (Other)
  Sender: FDA-Public Use
  Company Number: DE-WATSON-2012-15914

PATIENT
  Age: 18 Year
  Sex: Female

DRUGS (1)
  1. MINOCYCLINE HCL (WATSON LABORATORIES) [Suspect]
     Indication: ACNE
     Dosage: 100 mg, daily
     Route: 065

REACTIONS (4)
  - Photoonycholysis [Recovered/Resolved]
  - Pseudomonas infection [Recovered/Resolved]
  - Candidiasis [Recovered/Resolved]
  - Superinfection [Recovered/Resolved]
